FAERS Safety Report 7116207-9 (Version None)
Quarter: 2010Q4

REPORT INFORMATION
  Report Type: 
  Country: None (occurrence: None)
  Receive Date: 20101122
  Receipt Date: 20101116
  Transmission Date: 20110411
  Serious: Yes (Congenital Anomaly)
  Sender: FDA-Public Use
  Company Number: GB-TEVA-247856ISR

PATIENT

DRUGS (2)
  1. LEVONORGESTREL [Suspect]
     Indication: PRODUCT USED FOR UNKNOWN INDICATION
     Route: 064
     Dates: start: 20080501
  2. LEVONORGESTREL [Suspect]
     Route: 064
     Dates: start: 20080101

REACTIONS (3)
  - CONGENITAL PULMONARY VALVE ATRESIA [None]
  - DRUG EXPOSURE DURING PREGNANCY [None]
  - VENTRICULAR SEPTAL DEFECT [None]
